FAERS Safety Report 8299610-3 (Version None)
Quarter: 2012Q2

REPORT INFORMATION
  Report Type: 
  Country: None (occurrence: None)
  Receive Date: 20120419
  Receipt Date: 20120412
  Transmission Date: 20120825
  Serious: Yes (Other)
  Sender: FDA-Public Use
  Company Number: US-GLAXOSMITHKLINE-A0974014A

PATIENT
  Age: 69 Year
  Sex: Male
  Weight: 97.7 kg

DRUGS (9)
  1. DIOVAN [Concomitant]
  2. JANUVIA [Concomitant]
  3. GLIMEPIRIDE [Concomitant]
  4. PROMACTA [Suspect]
     Indication: IDIOPATHIC THROMBOCYTOPENIC PURPURA
     Dosage: 75MG PER DAY
     Route: 048
     Dates: start: 20120106
  5. ZOLPIDEM [Concomitant]
  6. PREDNISONE TAB [Concomitant]
  7. HYDROCHLOROTHIAZIDE [Concomitant]
  8. METFORMIN HCL [Concomitant]
  9. CRESTOR [Concomitant]

REACTIONS (2)
  - HAEMORRHAGE [None]
  - WOUND HAEMORRHAGE [None]
